FAERS Safety Report 10715683 (Version 1)
Quarter: 2014Q4

REPORT INFORMATION
  Report Type: Spontaneous
  Country: US (occurrence: None)
  Receive Date: 20141223
  Receipt Date: 20141223
  Transmission Date: 20150529
  Serious: Yes (Hospitalization)
  Sender: FDA-Public Use
  Company Number: 1423623

PATIENT
  Age: 40 Year
  Sex: Female

DRUGS (1)
  1. TOCILIZUMAB (TOCILIZUMB) [Suspect]
     Active Substance: TOCILIZUMAB
     Indication: RHEUMATOID ARTHRITIS

REACTIONS (1)
  - Meningitis cryptococcal [None]
